FAERS Safety Report 10024891 (Version 2)
Quarter: 2014Q1

REPORT INFORMATION
  Report Type: Spontaneous
  Country: IT (occurrence: IT)
  Receive Date: 20140320
  Receipt Date: 20140320
  Transmission Date: 20141002
  Serious: Yes (Other)
  Sender: FDA-Public Use
  Company Number: IT-ACTAVIS-2014-02285

PATIENT
  Age: 65 Year
  Sex: Female
  Weight: 68 kg

DRUGS (4)
  1. OXALIPLATIN (UNKNOWN) [Suspect]
     Indication: COLON CANCER
     Dosage: 100 MG, CYCLICAL
     Route: 042
     Dates: start: 20131107, end: 20140116
  2. AVASTIN                            /00848101/ [Concomitant]
     Indication: PRODUCT USED FOR UNKNOWN INDICATION
     Dosage: 340 MG, UNK
     Route: 042
     Dates: start: 20131107, end: 20140116
  3. XELODA [Concomitant]
     Indication: PRODUCT USED FOR UNKNOWN INDICATION
     Dosage: 2500 MG, UNK
     Route: 048
     Dates: start: 20131107, end: 20140116
  4. XELODA [Concomitant]
     Indication: PRODUCT USED FOR UNKNOWN INDICATION

REACTIONS (1)
  - Paraesthesia [Recovering/Resolving]
